FAERS Safety Report 18072222 (Version 2)
Quarter: 2020Q3

REPORT INFORMATION
  Report Type: Spontaneous
  Country: US (occurrence: US)
  Receive Date: 20200727
  Receipt Date: 20200727
  Transmission Date: 20201105
  Serious: Yes (Hospitalization)
  Sender: FDA-Public Use
  Company Number: US-CELGENEUS-USA-20200704744

PATIENT
  Age: 74 Year
  Sex: Male
  Weight: 120 kg

DRUGS (35)
  1. LOVENOX [Concomitant]
     Active Substance: ENOXAPARIN SODIUM
     Indication: PRODUCT USED FOR UNKNOWN INDICATION
     Route: 065
     Dates: start: 20111207, end: 20200325
  2. DIPHENHYDRAMINE. [Concomitant]
     Active Substance: DIPHENHYDRAMINE
     Indication: PRODUCT USED FOR UNKNOWN INDICATION
     Route: 065
     Dates: start: 20200214, end: 20200410
  3. CBD OIL [Concomitant]
     Active Substance: CANNABIDIOL\HERBALS
     Indication: PRODUCT USED FOR UNKNOWN INDICATION
     Route: 065
     Dates: start: 20200214, end: 20200410
  4. AMINOPHYLINE [Concomitant]
     Active Substance: AMINOPHYLLINE
     Indication: DYSPNOEA
     Route: 065
  5. HYOSCYAMINE. [Concomitant]
     Active Substance: HYOSCYAMINE
     Indication: BLADDER SPASM
     Route: 065
     Dates: start: 20200402, end: 20200402
  6. TRAZODONE [Concomitant]
     Active Substance: TRAZODONE HYDROCHLORIDE
     Indication: PROPHYLAXIS
     Route: 065
     Dates: start: 20200401
  7. ZINC SULFATE. [Concomitant]
     Active Substance: ZINC SULFATE
     Indication: SUPPLEMENTATION THERAPY
     Dosage: 220 MILLIGRAM
     Route: 065
     Dates: start: 20200404, end: 20200410
  8. ONDANSETRON [Concomitant]
     Active Substance: ONDANSETRON
     Indication: PRODUCT USED FOR UNKNOWN INDICATION
     Route: 048
     Dates: start: 20200323
  9. HYDRALAZINE [Concomitant]
     Active Substance: HYDRALAZINE HYDROCHLORIDE
     Indication: CORONARY ARTERY DISEASE
     Dosage: 10 MILLIGRAM
     Route: 065
     Dates: start: 20200402, end: 20200410
  10. AMINOPHYLINE [Concomitant]
     Active Substance: AMINOPHYLLINE
     Indication: BRONCHOSPASM
     Route: 065
     Dates: start: 20200405, end: 20200405
  11. GUAIFENESIN. [Concomitant]
     Active Substance: GUAIFENESIN
     Indication: COUGH
     Dosage: 100 MILLIGRAM
     Route: 065
     Dates: start: 20200401
  12. ZOLBETUXIMAB. [Suspect]
     Active Substance: ZOLBETUXIMAB
     Indication: PANCREATIC CARCINOMA METASTATIC
     Dosage: 1000 MILLIGRAM/SQ. METER
     Route: 041
     Dates: start: 20200326
  13. GEMCITABINE. [Suspect]
     Active Substance: GEMCITABINE
     Indication: PANCREATIC CARCINOMA METASTATIC
     Dosage: 800 MILLIGRAM/SQ. METER (ONE TIME PER WEEK FOR 3 WEEKS EVERY 21 DAY CYCLE)
     Route: 065
     Dates: start: 20200326
  14. ELIQUIS [Concomitant]
     Active Substance: APIXABAN
     Indication: DEEP VEIN THROMBOSIS
     Route: 048
     Dates: start: 20200219, end: 20200410
  15. PLAVIX [Concomitant]
     Active Substance: CLOPIDOGREL BISULFATE
     Indication: PRODUCT USED FOR UNKNOWN INDICATION
     Route: 048
     Dates: start: 20091204, end: 20200410
  16. AZELASTINE. [Concomitant]
     Active Substance: AZELASTINE HYDROCHLORIDE
     Indication: PRODUCT USED FOR UNKNOWN INDICATION
     Route: 065
     Dates: start: 20200226, end: 20200404
  17. HEPARIN LOCK FLUSH [Concomitant]
     Active Substance: HEPARIN SODIUM
     Indication: PRODUCT USED FOR UNKNOWN INDICATION
     Route: 065
     Dates: start: 20200304, end: 20200331
  18. KLONOPIN [Concomitant]
     Active Substance: CLONAZEPAM
     Indication: PRODUCT USED FOR UNKNOWN INDICATION
     Route: 048
     Dates: start: 20150506, end: 20200410
  19. VITAMIN B12 [Concomitant]
     Active Substance: CYANOCOBALAMIN
     Indication: PRODUCT USED FOR UNKNOWN INDICATION
     Route: 048
     Dates: start: 20091204, end: 20200410
  20. FOLIC ACID. [Concomitant]
     Active Substance: FOLIC ACID
     Indication: PRODUCT USED FOR UNKNOWN INDICATION
     Route: 065
     Dates: start: 20200227, end: 20200410
  21. APREPITANT. [Concomitant]
     Active Substance: APREPITANT
     Indication: PRODUCT USED FOR UNKNOWN INDICATION
     Route: 065
     Dates: start: 20200325, end: 20200326
  22. ASPIRIN. [Concomitant]
     Active Substance: ASPIRIN
     Indication: PROPHYLAXIS
     Dosage: 81 MILLIGRAM
     Route: 048
     Dates: start: 20200403, end: 20200403
  23. VITAMIN A [Concomitant]
     Active Substance: VITAMIN A
     Indication: SUPPLEMENTATION THERAPY
     Dosage: 8000 IU (INTERNATIONAL UNIT)
     Route: 065
     Dates: start: 20200404, end: 20200410
  24. TOPROL XL [Concomitant]
     Active Substance: METOPROLOL SUCCINATE
     Indication: PRODUCT USED FOR UNKNOWN INDICATION
     Route: 048
     Dates: start: 20200219
  25. AMOXICILLIN. [Concomitant]
     Active Substance: AMOXICILLIN
     Indication: PRODUCT USED FOR UNKNOWN INDICATION
     Route: 048
     Dates: start: 20200226, end: 20200404
  26. FLUTICASONE PROPIONATE. [Concomitant]
     Active Substance: FLUTICASONE PROPIONATE
     Indication: PRODUCT USED FOR UNKNOWN INDICATION
     Route: 065
     Dates: start: 20200214
  27. POLYETHYLENE GLYCOL 3350. [Concomitant]
     Active Substance: POLYETHYLENE GLYCOL 3350
     Indication: PRODUCT USED FOR UNKNOWN INDICATION
     Route: 065
     Dates: start: 20200214
  28. TRAMADOL. [Concomitant]
     Active Substance: TRAMADOL
     Indication: PRODUCT USED FOR UNKNOWN INDICATION
     Route: 065
     Dates: start: 20200325, end: 20200410
  29. OXYCODONE [Concomitant]
     Active Substance: OXYCODONE
     Indication: PAIN
     Dosage: 5 MILLIGRAM
     Route: 065
     Dates: start: 20200410
  30. ABRAXANE [Suspect]
     Active Substance: PACLITAXEL
     Indication: PANCREATIC CARCINOMA METASTATIC
     Dosage: 100 MILLIGRAM/SQ. METER (ONE TIME PER WEEK FOR 3 WEEKS EVERY 21 DAY CYCLE)
     Route: 041
     Dates: start: 20200326
  31. VITAMIN D3 [Concomitant]
     Active Substance: CHOLECALCIFEROL
     Indication: PRODUCT USED FOR UNKNOWN INDICATION
     Route: 048
     Dates: start: 20200214, end: 20200410
  32. LORAZEPAM. [Concomitant]
     Active Substance: LORAZEPAM
     Indication: PRODUCT USED FOR UNKNOWN INDICATION
     Route: 065
     Dates: start: 20200323, end: 20200410
  33. ASPIRIN. [Concomitant]
     Active Substance: ASPIRIN
     Dosage: 243 MILLIGRAM
     Route: 048
     Dates: start: 20200401, end: 20200401
  34. PROCHLORPERAZINE. [Concomitant]
     Active Substance: PROCHLORPERAZINE
     Indication: NAUSEA
     Dosage: 5 MILLIGRAM
     Route: 041
     Dates: start: 20200409, end: 20200410
  35. TAMSULOSIN [Concomitant]
     Active Substance: TAMSULOSIN
     Indication: CORONARY ARTERY DISEASE
     Dosage: .4 MILLIGRAM
     Route: 065
     Dates: start: 20200401

REACTIONS (12)
  - White blood cell count decreased [Not Recovered/Not Resolved]
  - Confusional state [Not Recovered/Not Resolved]
  - Thrombotic microangiopathy [Not Recovered/Not Resolved]
  - Disseminated intravascular coagulation [Not Recovered/Not Resolved]
  - Atrial thrombosis [Not Recovered/Not Resolved]
  - Encephalopathy [Not Recovered/Not Resolved]
  - Lactic acidosis [Recovered/Resolved]
  - Pulmonary embolism [Not Recovered/Not Resolved]
  - Febrile neutropenia [Not Recovered/Not Resolved]
  - Platelet count decreased [Not Recovered/Not Resolved]
  - Cerebrovascular accident [Not Recovered/Not Resolved]
  - Neutrophil count decreased [Not Recovered/Not Resolved]

NARRATIVE: CASE EVENT DATE: 20200401
